FAERS Safety Report 5709948-9 (Version None)
Quarter: 2008Q2

REPORT INFORMATION
  Report Type: 
  Country: None (occurrence: None)
  Receive Date: 20080418
  Receipt Date: 20070720
  Transmission Date: 20081010
  Serious: No
  Sender: FDA-Public Use
  Company Number: US-ASTRAZENECA-2007UW16448

PATIENT
  Sex: Female

DRUGS (3)
  1. TOPROL-XL [Suspect]
     Indication: STENT PLACEMENT
     Route: 048
  2. ATENOLOL [Suspect]
     Route: 048
  3. ISOSORBIDE DINITRATE [Concomitant]

REACTIONS (1)
  - ALOPECIA [None]
